FAERS Safety Report 6227416-5 (Version None)
Quarter: 2009Q2

REPORT INFORMATION
  Report Type: 
  Country: None (occurrence: None)
  Receive Date: 20090610
  Receipt Date: 20090610
  Transmission Date: 20091009
  Serious: Yes (Disabling, Other)
  Sender: FDA-Public Use
  Company Number: None

PATIENT
  Age: 28 Year
  Sex: Female
  Weight: 74.8435 kg

DRUGS (1)
  1. MIRENA [Suspect]
     Indication: CONTRACEPTION
     Dosage: 5 YEAR DOSE
     Dates: start: 20031029, end: 20080815

REACTIONS (2)
  - EMOTIONAL DISTRESS [None]
  - INFERTILITY FEMALE [None]
